FAERS Safety Report 14189220 (Version 12)
Quarter: 2020Q4

REPORT INFORMATION
  Report Type: Report from Study
  Country: DE (occurrence: DE)
  Receive Date: 20171115
  Receipt Date: 20201218
  Transmission Date: 20210113
  Serious: Yes (Death, Hospitalization, Other)
  Sender: FDA-Public Use
  Company Number: DE-BRISTOL-MYERS SQUIBB COMPANY-BMS-2017-088426

PATIENT
  Age: 67 Year
  Sex: Female

DRUGS (10)
  1. NIVOLUMAB [Suspect]
     Active Substance: NIVOLUMAB
     Indication: RENAL CELL CARCINOMA
     Dosage: 3 MG/KG, Q2WK
     Route: 042
     Dates: start: 20170811, end: 20170925
  2. FERROSANOL [Concomitant]
     Active Substance: FERROUS GLUCONATE
     Indication: PRODUCT USED FOR UNKNOWN INDICATION
     Dosage: 200 MG, UNK
     Route: 065
     Dates: start: 20170811
  3. PANTOZOL [Concomitant]
     Active Substance: PANTOPRAZOLE SODIUM
     Indication: PROPHYLAXIS
     Dosage: 40 MG, UNK
     Route: 065
  4. MIRTAZAPIN [Concomitant]
     Active Substance: MIRTAZAPINE
     Indication: MALIGNANT NEOPLASM PROGRESSION
     Dosage: 15 MG, UNK
     Route: 065
  5. TAVOR (LORAZEPAM) [Concomitant]
     Active Substance: LORAZEPAM
     Indication: MALIGNANT NEOPLASM PROGRESSION
     Dosage: 1.5 MG, UNK
     Route: 065
  6. MOVICOL [MACROGOL 4000;POTASSIUM CHLORIDE;SODIUM BICARBONATE;SODIUM CH [Concomitant]
     Indication: PROPHYLAXIS
     Dosage: UNK 3 BEUTEL SACHETS
     Route: 065
     Dates: end: 20171102
  7. METOCLOPRAMIDE. [Concomitant]
     Active Substance: METOCLOPRAMIDE
     Indication: PROPHYLAXIS
     Dosage: 30 MG, UNK
     Route: 065
  8. L-THYROX [Concomitant]
     Active Substance: LEVOTHYROXINE SODIUM
     Indication: PRODUCT USED FOR UNKNOWN INDICATION
     Dosage: 50 G, UNK
     Route: 065
     Dates: start: 20170726
  9. MORPHIN [MORPHINE SULFATE] [Concomitant]
     Indication: MALIGNANT NEOPLASM PROGRESSION
     Dosage: 10 MG, PRN, IBEDARF
     Route: 058
  10. LYRICA [Concomitant]
     Active Substance: PREGABALIN
     Indication: MALIGNANT NEOPLASM PROGRESSION
     Dosage: 25 MG, UNK
     Route: 065
     Dates: end: 20171105

REACTIONS (10)
  - Malignant neoplasm progression [Fatal]
  - Metastasis [Not Recovered/Not Resolved]
  - Pulmonary embolism [Recovering/Resolving]
  - Urinary tract infection [Recovered/Resolved]
  - Venous thrombosis limb [Not Recovered/Not Resolved]
  - Escherichia infection [Unknown]
  - Diarrhoea [Recovered/Resolved]
  - Nausea [Recovered/Resolved]
  - Anaemia [Unknown]
  - Infected neoplasm [Not Recovered/Not Resolved]

NARRATIVE: CASE EVENT DATE: 20170812
